FAERS Safety Report 10359665 (Version 2)
Quarter: 2014Q3

REPORT INFORMATION
  Report Type: Spontaneous
  Country: US (occurrence: US)
  Receive Date: 20140804
  Receipt Date: 20140821
  Transmission Date: 20150326
  Serious: No
  Sender: FDA-Public Use
  Company Number: US-PFIZER INC-2014214006

PATIENT
  Age: 75 Year
  Sex: Male

DRUGS (1)
  1. SUTENT [Suspect]
     Active Substance: SUNITINIB MALATE
     Indication: RENAL CELL CARCINOMA
     Dosage: 37.5 MG, CYCLIC DAILY (14 DAYS OFF 7 DAYS)
     Route: 048
     Dates: start: 20140505

REACTIONS (3)
  - Retching [Unknown]
  - Fatigue [Unknown]
  - Malaise [Unknown]
